FAERS Safety Report 5914137-9 (Version None)
Quarter: 2008Q3

REPORT INFORMATION
  Report Type: 
  Country: None (occurrence: None)
  Receive Date: 20080909
  Receipt Date: 20071113
  Transmission Date: 20090109
  Serious: Yes (Death, Other)
  Sender: FDA-Public Use
  Company Number: 163-20785-07091510 (0)

PATIENT
  Age: 81 Year
  Sex: Male

DRUGS (6)
  1. THALOMID [Suspect]
     Indication: MYELODYSPLASTIC SYNDROME
     Dosage: 300 MG, 2 IN 1 D, ORAL ; 200-300MG, DAILY, ORAL ; 400 MG, 4 IN 1 D, ORAL ; 200-250MG, DAILY, ORAL
     Route: 048
     Dates: start: 20050315, end: 20051201
  2. THALOMID [Suspect]
     Indication: MYELODYSPLASTIC SYNDROME
     Dosage: 300 MG, 2 IN 1 D, ORAL ; 200-300MG, DAILY, ORAL ; 400 MG, 4 IN 1 D, ORAL ; 200-250MG, DAILY, ORAL
     Route: 048
     Dates: start: 20061002, end: 20070401
  3. THALOMID [Suspect]
     Indication: MYELODYSPLASTIC SYNDROME
     Dosage: 300 MG, 2 IN 1 D, ORAL ; 200-300MG, DAILY, ORAL ; 400 MG, 4 IN 1 D, ORAL ; 200-250MG, DAILY, ORAL
     Route: 048
     Dates: start: 20060731
  4. THALOMID [Suspect]
     Indication: MYELODYSPLASTIC SYNDROME
     Dosage: 300 MG, 2 IN 1 D, ORAL ; 200-300MG, DAILY, ORAL ; 400 MG, 4 IN 1 D, ORAL ; 200-250MG, DAILY, ORAL
     Route: 048
     Dates: start: 20070516
  5. LIPITOR [Concomitant]
  6. DESFERAL [Concomitant]

REACTIONS (1)
  - NEOPLASM PROGRESSION [None]
